FAERS Safety Report 9115472 (Version 1)
Quarter: 2013Q1

REPORT INFORMATION
  Report Type: Spontaneous
  Country: US (occurrence: None)
  Receive Date: 20130128
  Receipt Date: 20130128
  Transmission Date: 20140127
  Serious: Yes (Life-Threatening, Hospitalization)
  Sender: FDA-Public Use
  Company Number: C-13-010

PATIENT
  Age: 45 Day
  Sex: Female

DRUGS (1)
  1. OXYCODONE [Suspect]
     Indication: PROCEDURAL PAIN
     Dosage: 5-10MG  -  Q4-6?UNKNOWN - UNKNOWN

REACTIONS (16)
  - Feeding disorder of infancy or early childhood [None]
  - Constipation [None]
  - Overdose [None]
  - Sluggishness [None]
  - Dyspnoea [None]
  - Hypopnoea [None]
  - Heart rate increased [None]
  - Respiratory disorder [None]
  - Miosis [None]
  - Blood glucose increased [None]
  - Blood pH decreased [None]
  - Respiratory rate decreased [None]
  - Blood pressure decreased [None]
  - Respiratory distress [None]
  - Sedation [None]
  - Exposure during breast feeding [None]
